FAERS Safety Report 8219315-4 (Version None)
Quarter: 2012Q1

REPORT INFORMATION
  Report Type: 
  Country: None (occurrence: None)
  Receive Date: 20120319
  Receipt Date: 20120312
  Transmission Date: 20120608
  Serious: Yes (Death)
  Sender: FDA-Public Use
  Company Number: JP-ASTELLAS-2012JP001858

PATIENT
  Sex: Male

DRUGS (4)
  1. ALDACTONE [Concomitant]
     Dosage: 1 DF, UNKNOWN/D
     Route: 048
  2. UNIPHYL [Concomitant]
     Indication: CHRONIC OBSTRUCTIVE PULMONARY DISEASE
     Dosage: UNK
     Route: 065
  3. ERYTHROCIN LACTOBIONATE [Concomitant]
     Indication: CHRONIC OBSTRUCTIVE PULMONARY DISEASE
     Dosage: UNK
     Route: 065
  4. PROGRAF [Suspect]
     Indication: RHEUMATOID ARTHRITIS
     Dosage: 0.5 MG, QOD
     Route: 048

REACTIONS (1)
  - BLOOD POTASSIUM INCREASED [None]
